FAERS Safety Report 18251718 (Version 1)
Quarter: 2020Q3

REPORT INFORMATION
  Report Type: Spontaneous
  Country: US (occurrence: US)
  Receive Date: 20200910
  Receipt Date: 20200910
  Transmission Date: 20201103
  Serious: Yes (Life-Threatening, Hospitalization, Other)
  Sender: FDA-Public Use
  Company Number: US-TORRENT-00010389

PATIENT
  Sex: Female

DRUGS (3)
  1. ANAKINRA [Concomitant]
     Active Substance: ANAKINRA
     Indication: JUVENILE IDIOPATHIC ARTHRITIS
     Route: 058
  2. HYDROXYCHLOROQUINE [Suspect]
     Active Substance: HYDROXYCHLOROQUINE
     Indication: JUVENILE IDIOPATHIC ARTHRITIS
  3. HYDROCORTISONE. [Suspect]
     Active Substance: HYDROCORTISONE
     Indication: JUVENILE IDIOPATHIC ARTHRITIS
     Dosage: EVERY MORNING

REACTIONS (15)
  - Fall [Recovered/Resolved]
  - Toxicity to various agents [Recovered/Resolved]
  - Cervical vertebral fracture [Recovered/Resolved]
  - Encephalomalacia [Recovered/Resolved]
  - Pneumothorax [Recovered/Resolved]
  - Muscle injury [Recovered/Resolved]
  - Hypercapnia [Recovered/Resolved]
  - Diaphragm muscle weakness [Recovered/Resolved]
  - Respiratory acidosis [Recovered/Resolved]
  - Embolic stroke [Recovered/Resolved]
  - Myopathy [Recovered/Resolved]
  - Tibia fracture [Recovered/Resolved]
  - Subarachnoid haemorrhage [Recovered/Resolved]
  - Encephalopathy [Recovered/Resolved]
  - Respiratory failure [Recovered/Resolved]
